FAERS Safety Report 4748121-8 (Version None)
Quarter: 2005Q3

REPORT INFORMATION
  Report Type: 
  Country: None (occurrence: None)
  Receive Date: 20050816
  Receipt Date: 20050726
  Transmission Date: 20060218
  Serious: Yes (Hospitalization)
  Sender: FDA-Public Use
  Company Number: 02100-USA-02-0235

PATIENT
  Age: 75 Year
  Sex: Female

DRUGS (13)
  1. CILOSTAZOL [Suspect]
     Indication: INTERMITTENT CLAUDICATION
     Dosage: 200 MG/100 MG/200/100 MG
     Route: 048
     Dates: start: 20000820, end: 20020902
  2. CILOSTAZOL [Suspect]
     Indication: INTERMITTENT CLAUDICATION
     Dosage: 200 MG/100 MG/200/100 MG
     Route: 048
     Dates: start: 20000820, end: 20020902
  3. CILOSTAZOL [Suspect]
     Indication: INTERMITTENT CLAUDICATION
     Dosage: 200 MG/100 MG/200/100 MG
     Route: 048
     Dates: start: 20020928
  4. CILOSTAZOL [Suspect]
     Indication: INTERMITTENT CLAUDICATION
     Dosage: 200 MG/100 MG/200/100 MG
     Route: 048
     Dates: start: 20020928
  5. DILTIAZEM [Concomitant]
  6. ISOSORBIDE [Concomitant]
  7. CITALOPRAM [Concomitant]
  8. RANITIDINE HCL [Concomitant]
  9. WARFARIN SODIUM [Concomitant]
  10. ESTROGENS CONJUGATED [Concomitant]
  11. ASPIRIN [Concomitant]
  12. QUININE SULFATE [Concomitant]
  13. FUROSEMIDE [Concomitant]

REACTIONS (11)
  - CHEST PAIN [None]
  - COLONIC POLYP [None]
  - DIVERTICULUM [None]
  - GASTROINTESTINAL ANGIODYSPLASIA HAEMORRHAGIC [None]
  - GASTROINTESTINAL ARTERIOVENOUS MALFORMATION [None]
  - HAEMATOCRIT DECREASED [None]
  - HAEMOGLOBIN DECREASED [None]
  - HYPOTENSION [None]
  - INTERNATIONAL NORMALISED RATIO INCREASED [None]
  - MELANOSIS COLI [None]
  - PROTHROMBIN TIME PROLONGED [None]
